FAERS Safety Report 6663185-2 (Version None)
Quarter: 2010Q2

REPORT INFORMATION
  Report Type: 
  Country: None (occurrence: None)
  Receive Date: 20100401
  Receipt Date: 20100319
  Transmission Date: 20101027
  Serious: Yes (Other)
  Sender: FDA-Public Use
  Company Number: PHHY2010US17495

PATIENT
  Sex: Female

DRUGS (1)
  1. GENTEAL LUBRICANT EYE DROPS (NVO) [Suspect]

REACTIONS (3)
  - DRY EYE [None]
  - SCAR [None]
  - SCAR EXCISION [None]
